FAERS Safety Report 10415345 (Version 1)
Quarter: 2014Q3

REPORT INFORMATION
  Report Type: Spontaneous
  Country: US (occurrence: US)
  Receive Date: 20140828
  Receipt Date: 20140828
  Transmission Date: 20150326
  Serious: Yes (Other)
  Sender: FDA-Public Use
  Company Number: US-PFIZER INC-2014235794

PATIENT
  Age: 64 Year
  Sex: Female
  Weight: 58.1 kg

DRUGS (5)
  1. PREMARIN [Suspect]
     Active Substance: ESTROGENS, CONJUGATED
     Dosage: 0.9 MG, DAILY
     Dates: start: 2001
  2. WARFARIN [Concomitant]
     Active Substance: WARFARIN
     Indication: THROMBOSIS
     Dosage: 8MG IN FIRST THREE DAYS OF A WEEK AND 9 MG IN NEXT FOUR DAYS OF A WEEK
  3. SYNTHROID [Concomitant]
     Active Substance: LEVOTHYROXINE SODIUM
     Indication: THYROID DISORDER
     Dosage: 200 UG, DAILY
  4. CYTOMEL [Concomitant]
     Active Substance: LIOTHYRONINE SODIUM
     Indication: THYROID DISORDER
     Dosage: 05 UG, 4X/DAY
  5. PREMARIN [Suspect]
     Active Substance: ESTROGENS, CONJUGATED
     Indication: MENOPAUSAL SYMPTOMS
     Dosage: 0.625 MG, DAILY
     Dates: start: 2001

REACTIONS (6)
  - Drug ineffective [Recovered/Resolved]
  - Uterine haemorrhage [Recovered/Resolved]
  - Endometrial hypertrophy [Recovered/Resolved]
  - Uterine leiomyoma [Recovered/Resolved]
  - Uterine pain [Recovered/Resolved]
  - Uterine spasm [Recovered/Resolved]

NARRATIVE: CASE EVENT DATE: 2011
